FAERS Safety Report 6902228-5 (Version None)
Quarter: 2010Q3

REPORT INFORMATION
  Report Type: 
  Country: None (occurrence: None)
  Receive Date: 20100803
  Receipt Date: 20080502
  Transmission Date: 20110219
  Serious: No
  Sender: FDA-Public Use
  Company Number: US-PFIZER INC-2008039554

PATIENT
  Sex: Female
  Weight: 63.636 kg

DRUGS (4)
  1. LYRICA [Suspect]
     Indication: TREMOR
     Route: 048
     Dates: start: 20080430
  2. PROZAC [Concomitant]
     Route: 048
  3. KLONOPIN [Concomitant]
     Route: 048
  4. CYMBALTA [Concomitant]
     Route: 048
     Dates: start: 20071101

REACTIONS (2)
  - DIZZINESS [None]
  - SOMNOLENCE [None]
